FAERS Safety Report 25620938 (Version 1)
Quarter: 2025Q3

REPORT INFORMATION
  Report Type: Spontaneous
  Country: US (occurrence: US)
  Receive Date: 20250730
  Receipt Date: 20250730
  Transmission Date: 20251020
  Serious: Yes (Other)
  Sender: AMNEAL
  Company Number: US-AMNEAL-2024-AMRX-03321

PATIENT
  Age: 56 Year
  Sex: Female
  Weight: 68.027 kg

DRUGS (2)
  1. BACLOFEN [Suspect]
     Active Substance: BACLOFEN
     Indication: Product used for unknown indication
     Dosage: 500 MCG/ML, 100 MCG/DAY
     Route: 037
  2. BACLOFEN [Concomitant]
     Active Substance: BACLOFEN
     Indication: Product used for unknown indication
     Route: 048

REACTIONS (2)
  - Loss of therapeutic response [Unknown]
  - Device dislocation [Unknown]

NARRATIVE: CASE EVENT DATE: 20240901
